FAERS Safety Report 5112567-9 (Version None)
Quarter: 2006Q3

REPORT INFORMATION
  Report Type: 
  Country: None (occurrence: None)
  Receive Date: 20060922
  Receipt Date: 20060915
  Transmission Date: 20061208
  Serious: Yes (Death, Hospitalization)
  Sender: FDA-Public Use
  Company Number: PHEH2006US11808

PATIENT
  Age: 74 Year
  Sex: Female
  Weight: 91 kg

DRUGS (6)
  1. LOPRESSOR [Suspect]
     Route: 042
     Dates: start: 20060721
  2. LOVENOX [Suspect]
     Dosage: 1 MG/KG
     Route: 058
     Dates: start: 20060721, end: 20060724
  3. EPHEDRA [Concomitant]
  4. ASPIRIN [Concomitant]
     Dates: start: 20060721
  5. LASIX [Concomitant]
     Dates: start: 20060721
  6. PROPOFOL [Suspect]
     Indication: AGITATION

REACTIONS (29)
  - ABDOMINAL PAIN [None]
  - ACUTE MYOCARDIAL INFARCTION [None]
  - ACUTE PULMONARY OEDEMA [None]
  - ACUTE RESPIRATORY FAILURE [None]
  - AGITATION [None]
  - ANAEMIA [None]
  - ANURIA [None]
  - BLOOD ALKALINE PHOSPHATASE INCREASED [None]
  - BLOOD CREATININE INCREASED [None]
  - CARDIAC FAILURE CONGESTIVE [None]
  - CARDIOGENIC SHOCK [None]
  - CORONARY ARTERY DISEASE [None]
  - CREPITATIONS [None]
  - DEPRESSED LEVEL OF CONSCIOUSNESS [None]
  - DILATATION ATRIAL [None]
  - ECCHYMOSIS [None]
  - HAEMATOMA [None]
  - HAEMOGLOBIN DECREASED [None]
  - HAEMORRHAGE [None]
  - HEADACHE [None]
  - HYPOTENSION [None]
  - LUNG INFILTRATION [None]
  - METABOLIC ACIDOSIS [None]
  - MYALGIA [None]
  - PULMONARY OEDEMA [None]
  - RENAL FAILURE [None]
  - SINUS TACHYCARDIA [None]
  - SOMNOLENCE [None]
  - URINE OUTPUT DECREASED [None]
